FAERS Safety Report 15554106 (Version 2)
Quarter: 2019Q1

REPORT INFORMATION
  Report Type: Spontaneous
  Country: JP (occurrence: JP)
  Receive Date: 20181026
  Receipt Date: 20190130
  Transmission Date: 20190417
  Serious: Yes (Other)
  Sender: FDA-Public Use
  Company Number: JP-ACCORD-078943

PATIENT
  Age: 57 Year
  Sex: Male
  Weight: 60 kg

DRUGS (2)
  1. FLUOROURACIL. [Suspect]
     Active Substance: FLUOROURACIL
     Indication: OESOPHAGEAL SQUAMOUS CELL CARCINOMA
     Dosage: ON DAYS 1-5 OF A 28-DAY CYCLE. TWO CYCLES OF CHEMOTHERAPY WERE CONDUCTED.
     Route: 042
  2. CISPLATIN. [Suspect]
     Active Substance: CISPLATIN
     Indication: OESOPHAGEAL SQUAMOUS CELL CARCINOMA
     Dosage: WITHIN 30 MIN ON DAY 1
     Route: 042

REACTIONS (4)
  - Decreased appetite [Unknown]
  - Leukopenia [Unknown]
  - Anaemia [Unknown]
  - Thrombocytopenia [Unknown]
